FAERS Safety Report 10931740 (Version 3)
Quarter: 2016Q4

REPORT INFORMATION
  Report Type: Spontaneous
  Country: US (occurrence: US)
  Receive Date: 20150319
  Receipt Date: 20161208
  Transmission Date: 20170206
  Serious: Yes (Death, Hospitalization, Other)
  Sender: FDA-Public Use
  Company Number: US-BAXTER-2015BAX013225

PATIENT
  Sex: Male

DRUGS (2)
  1. DIANEAL LOW CALCIUM PERITONEAL DIALYSIS SOLUTION WITH DEXTROSE [Suspect]
     Active Substance: CALCIUM CHLORIDE\DEXTROSE\MAGNESIUM CHLORIDE\SODIUM CHLORIDE\SODIUM LACTATE
     Indication: END STAGE RENAL DISEASE
     Route: 033
     Dates: start: 201303, end: 201411
  2. DIANEAL LOW CALCIUM PERITONEAL DIALYSIS SOLUTION WITH DEXTROSE [Suspect]
     Active Substance: CALCIUM CHLORIDE\DEXTROSE\MAGNESIUM CHLORIDE\SODIUM CHLORIDE\SODIUM LACTATE
     Indication: PERITONEAL DIALYSIS
     Route: 033
     Dates: start: 201303, end: 201411

REACTIONS (12)
  - Peritoneal dialysis complication [Unknown]
  - General physical health deterioration [Unknown]
  - Sinusitis [Unknown]
  - Acute respiratory failure [Fatal]
  - Ileus [Unknown]
  - Malnutrition [Fatal]
  - Atrial fibrillation [Unknown]
  - Fungal peritonitis [Unknown]
  - Constipation [Unknown]
  - Urinary tract infection [Unknown]
  - Pneumonia aspiration [Fatal]
  - Encephalopathy [Fatal]

NARRATIVE: CASE EVENT DATE: 20141027
